FAERS Safety Report 8968394 (Version 1)
Quarter: 2012Q4

REPORT INFORMATION
  Report Type: 
  Country: US (occurrence: US)
  Receive Date: 20121218
  Receipt Date: 20121218
  Transmission Date: 20130627
  Serious: No
  Sender: FDA-Public Use
  Company Number: US-BRISTOL-MYERS SQUIBB COMPANY-16775132

PATIENT
  Sex: Female

DRUGS (6)
  1. ABILIFY [Suspect]
     Indication: DEPRESSION
  2. CHANTIX [Suspect]
  3. CYMBALTA [Suspect]
     Indication: DEPRESSION
  4. SEROQUEL [Suspect]
     Indication: DEPRESSION
  5. SKELAXIN [Concomitant]
  6. LEVOXYL [Concomitant]

REACTIONS (1)
  - Musculoskeletal pain [Unknown]
